FAERS Safety Report 7676091-1 (Version None)
Quarter: 2011Q3

REPORT INFORMATION
  Report Type: 
  Country: None (occurrence: None)
  Receive Date: 20110805
  Receipt Date: 20110721
  Transmission Date: 20111222
  Serious: Yes (Hospitalization, Other)
  Sender: FDA-Public Use
  Company Number: 2011MA009235

PATIENT
  Age: 61 Year
  Sex: Male

DRUGS (5)
  1. VANCOMYCIN [Suspect]
     Indication: DEVICE RELATED INFECTION
     Dosage: IV
     Route: 042
  2. TAZOBACTAM [Suspect]
     Indication: OSTEOMYELITIS
     Dosage: IV
     Route: 042
  3. BETADINE [Suspect]
     Indication: ULCER
  4. PIPERACILLIN [Suspect]
     Indication: OSTEOMYELITIS
     Dosage: IV
     Route: 042
  5. SULFAMETHOXAZOLE AND TRIMETHOPRIM [Suspect]
     Indication: INFECTION PROPHYLAXIS

REACTIONS (15)
  - TOXIC EPIDERMAL NECROLYSIS [None]
  - MUCOUS MEMBRANE DISORDER [None]
  - SKIN LESION [None]
  - ANTIBIOTIC RESISTANT STAPHYLOCOCCUS TEST POSITIVE [None]
  - PYREXIA [None]
  - TOE AMPUTATION [None]
  - RASH PRURITIC [None]
  - EPIDERMAL NECROSIS [None]
  - STEVENS-JOHNSON SYNDROME [None]
  - DEVICE RELATED INFECTION [None]
  - RASH GENERALISED [None]
  - DERMATITIS [None]
  - RASH MACULO-PAPULAR [None]
  - HYPOTENSION [None]
  - SKIN EXFOLIATION [None]
